FAERS Safety Report 14745138 (Version 1)
Quarter: 2018Q2

REPORT INFORMATION
  Report Type: Report from Study
  Country: US (occurrence: US)
  Receive Date: 20180411
  Receipt Date: 20180411
  Transmission Date: 20180711
  Serious: Yes (Other)
  Sender: FDA-Public Use
  Company Number: US-ROCHE-1985433

PATIENT
  Sex: Female
  Weight: 53.6 kg

DRUGS (1)
  1. ATEZOLIZUMAB. [Suspect]
     Active Substance: ATEZOLIZUMAB
     Indication: HAEMATOPOIETIC NEOPLASM
     Dosage: OVER 60 MINUTES ON DAY 1,?LAST DOSE PRIOR TO SAE: 14/JUN/2017 (C2D1)?SUBSEQUENT DOSE ON 05/JUL/2017
     Route: 042
     Dates: start: 20170525

REACTIONS (2)
  - White blood cell count decreased [Unknown]
  - Neutrophil count decreased [Unknown]
